FAERS Safety Report 19922935 (Version 1)
Quarter: 2021Q4

REPORT INFORMATION
  Report Type: Spontaneous
  Country: ES (occurrence: ES)
  Receive Date: 20211006
  Receipt Date: 20211006
  Transmission Date: 20220303
  Serious: Yes (Other)
  Sender: FDA-Public Use
  Company Number: None

PATIENT
  Age: 65 Year
  Sex: Male

DRUGS (2)
  1. DAPTOMYCIN [Suspect]
     Active Substance: DAPTOMYCIN
     Indication: Pseudarthrosis
     Dosage: 560 MILLIGRAM, QD; REPORTED NAME: DAPTOMICINA (7068 A)
     Route: 042
     Dates: start: 20201118, end: 20201125
  2. CEFTAZIDIMA [CEFTAZIDIME] [Concomitant]
     Indication: Pseudarthrosis
     Dosage: 2 GRAM, Q8H
     Route: 042
     Dates: start: 20201118

REACTIONS (1)
  - Hypersensitivity pneumonitis [Recovered/Resolved]

NARRATIVE: CASE EVENT DATE: 20201125
